FAERS Safety Report 20778414 (Version 2)
Quarter: 2022Q2

REPORT INFORMATION
  Report Type: Spontaneous
  Country: US (occurrence: US)
  Receive Date: 20220503
  Receipt Date: 20220519
  Transmission Date: 20220721
  Serious: No
  Sender: FDA-Public Use
  Company Number: US-PFIZER INC-2020383691

PATIENT
  Age: 63 Year
  Sex: Female
  Weight: 120 kg

DRUGS (3)
  1. LYRICA [Suspect]
     Active Substance: PREGABALIN
     Indication: Neuropathy peripheral
     Dosage: UNK, DAILY (^ONE A DAY^)
  2. LYRICA [Suspect]
     Active Substance: PREGABALIN
     Indication: Diabetes mellitus
     Dosage: 100 MG, 3X/DAY
     Route: 048
  3. LYRICA [Suspect]
     Active Substance: PREGABALIN
     Indication: Diabetic neuropathy

REACTIONS (4)
  - Hypoacusis [Unknown]
  - Dyspnoea [Unknown]
  - Memory impairment [Unknown]
  - Product dose omission issue [Unknown]
